FAERS Safety Report 9559386 (Version 1)
Quarter: 2013Q3

REPORT INFORMATION
  Report Type: Spontaneous
  Country: US (occurrence: None)
  Receive Date: 20130906
  Receipt Date: 20130906
  Transmission Date: 20140515
  Serious: Yes (Other)
  Sender: FDA-Public Use
  Company Number: 163-POMAL-13040098

PATIENT
  Age: 63 Year
  Sex: Male

DRUGS (15)
  1. POLMALYST [Suspect]
     Indication: PLASMA CELL MYELOMA
     Dosage: 4 MG, 21 IN 21 D, PO
     Route: 048
     Dates: start: 20130314, end: 20130325
  2. STEROID [Suspect]
  3. ACYCLOVIR(ACICLOVIR) [Concomitant]
  4. DEXAMETHASONE(DEXAMETHASONE) [Concomitant]
  5. HYDROCODONE-ACETAMINOPHEN)(VICODIN) [Concomitant]
  6. INSULIN(INSULIN)(INJECTION) [Concomitant]
  7. PROVENTIL(SALBUTAMOL) [Concomitant]
  8. WARFARIN(WARFARIN) [Concomitant]
  9. ZYRETC ALLERGY (CETIRIZINE HYDROCHLORIDE)(TABLETS) [Concomitant]
  10. ALEVA (NAPROXEN SODIUM)(TABLETS) [Concomitant]
  11. ALPRAZOLAM(ALPRAZOLAM)(TABLETS) [Concomitant]
  12. DILAUDID(HYDROMORPHONE HYDROCHLORIDE)(TABLETS) [Concomitant]
  13. DIPHENOXYLATE ATROPINE(LOMOTIL)(TABLETS) [Concomitant]
  14. GLYBURIDE(GLIBENCLAMIDE)(TABLETS) [Concomitant]
  15. LORTAB(VICODIN)(TABLETS) [Concomitant]

REACTIONS (9)
  - Blood glucose increased [None]
  - Diarrhoea [None]
  - Vomiting [None]
  - Nausea [None]
  - Bone pain [None]
  - Hypertension [None]
  - Back pain [None]
  - Insomnia [None]
  - Headache [None]
